FAERS Safety Report 7491719-7 (Version None)
Quarter: 2011Q2

REPORT INFORMATION
  Report Type: 
  Country: None (occurrence: None)
  Receive Date: 20110519
  Receipt Date: 20110510
  Transmission Date: 20111010
  Serious: Yes (Hospitalization, Other)
  Sender: FDA-Public Use
  Company Number: BE-ASTRAZENECA-2011SE28018

PATIENT
  Sex: Female

DRUGS (3)
  1. CORTICOSTEROID [Suspect]
     Route: 013
  2. XYLOCAINE [Suspect]
     Route: 013
  3. XYLOCAINE [Suspect]

REACTIONS (1)
  - OPISTHOTONUS [None]
